FAERS Safety Report 9896501 (Version 2)
Quarter: 2014Q1

REPORT INFORMATION
  Report Type: Spontaneous
  Country: US (occurrence: US)
  Receive Date: 20140213
  Receipt Date: 20140213
  Transmission Date: 20141002
  Serious: No
  Sender: FDA-Public Use
  Company Number: US-BRISTOL-MYERS SQUIBB COMPANY-18839258

PATIENT
  Age: 77 Year
  Sex: Female
  Weight: 70.29 kg

DRUGS (2)
  1. ORENCIA [Suspect]
     Indication: RHEUMATOID ARTHRITIS
     Dosage: LAST INFUSION15APR2013?TOT INF:03
     Route: 042
  2. ZYRTEC [Concomitant]

REACTIONS (3)
  - Stomatitis [Unknown]
  - Pruritus [Unknown]
  - Drug ineffective [Unknown]
